FAERS Safety Report 10684121 (Version 1)
Quarter: 2014Q4

REPORT INFORMATION
  Report Type: Report from Study
  Country: CA (occurrence: CA)
  Receive Date: 20141231
  Receipt Date: 20141231
  Transmission Date: 20150529
  Serious: Yes (Other)
  Sender: FDA-Public Use
  Company Number: CA-AMGEN-CANSL2014100721

PATIENT

DRUGS (1)
  1. ARANESP [Suspect]
     Active Substance: DARBEPOETIN ALFA
     Indication: EXPOSURE DURING PREGNANCY
     Dosage: 80 MUG, Q2WK
     Route: 064
     Dates: start: 20131217

REACTIONS (1)
  - Premature baby [Recovered/Resolved]

NARRATIVE: CASE EVENT DATE: 201404
